FAERS Safety Report 6905849-9 (Version None)
Quarter: 2010Q3

REPORT INFORMATION
  Report Type: 
  Country: None (occurrence: None)
  Receive Date: 20100804
  Receipt Date: 20100729
  Transmission Date: 20110219
  Serious: Yes (Hospitalization)
  Sender: FDA-Public Use
  Company Number: SE-ROCHE-715447

PATIENT
  Age: 48 Year
  Sex: Female

DRUGS (4)
  1. CLONAZEPAM [Suspect]
     Indication: PRODUCT USED FOR UNKNOWN INDICATION
     Dosage: DRUG REPORTED AS : IKTORIVIL TABL 2 MG, DOSE : REPORTED AS 6 MGD, FREQUENCY: NOT REPORTED.
     Route: 048
  2. LYRICA [Suspect]
     Indication: PRODUCT USED FOR UNKNOWN INDICATION
     Dosage: DRUG REPORTED AS LYRICA CAPSULE, HARD 150 MG, DOSE REPORTED AS 300 MGD, FREQUENCY: NOT REPORTED.
     Route: 048
  3. PANACOD [Concomitant]
     Dosage: REPORTED AS PANACOD TABL 500 MG/ 30 MG
     Route: 048
  4. STILNOCT [Concomitant]
     Dosage: REPORTED AS STILNCOT FC TABL 10 MG
     Route: 065

REACTIONS (1)
  - SYNCOPE [None]
